FAERS Safety Report 10019166 (Version 1)
Quarter: 2014Q1

REPORT INFORMATION
  Report Type: Other
  Country: PL (occurrence: PL)
  Receive Date: 20140318
  Receipt Date: 20140318
  Transmission Date: 20141002
  Serious: Yes (Hospitalization)
  Sender: FDA-Public Use
  Company Number: PL-BRISTOL-MYERS SQUIBB COMPANY-20515581

PATIENT
  Age: 65 Year
  Sex: Female

DRUGS (1)
  1. METFORMIN HCL TABS 500MG [Suspect]
     Indication: DIABETES MELLITUS
     Dosage: 850 MILLINGRAM IS ALSO TAKEN
     Dates: start: 2014

REACTIONS (5)
  - Toxicity to various agents [Recovering/Resolving]
  - Renal failure [Recovering/Resolving]
  - Hypotension [Recovering/Resolving]
  - Hyperkalaemia [Recovering/Resolving]
  - Metabolic acidosis [Recovering/Resolving]
